FAERS Safety Report 9508240 (Version 1)
Quarter: 2013Q3

REPORT INFORMATION
  Report Type: Spontaneous
  Country: IN (occurrence: None)
  Receive Date: 20130905
  Receipt Date: 20130905
  Transmission Date: 20140515
  Serious: Yes (Other)
  Sender: FDA-Public Use
  Company Number: FK201303817

PATIENT
  Age: 56 Year
  Sex: Male

DRUGS (2)
  1. VALPROATE (MANUFACTURER UNKNOWN) (VALPROATE SODIUM) (VALPROATE SODIUM) [Suspect]
     Indication: GRAND MAL CONVULSION
  2. LEVETIRACETAM (LEVETIRACETAM) [Concomitant]

REACTIONS (11)
  - Gaze palsy [None]
  - Toxicity to various agents [None]
  - Dysstasia [None]
  - Gait disturbance [None]
  - Somnolence [None]
  - Dysphonia [None]
  - Dysarthria [None]
  - Bradykinesia [None]
  - Muscle rigidity [None]
  - Tremor [None]
  - Posture abnormal [None]
